FAERS Safety Report 7305715-3 (Version None)
Quarter: 2011Q1

REPORT INFORMATION
  Report Type: 
  Country: None (occurrence: None)
  Receive Date: 20110222
  Receipt Date: 20110214
  Transmission Date: 20110831
  Serious: Yes (Hospitalization, Congenital Anomaly)
  Sender: FDA-Public Use
  Company Number: A0914498A

PATIENT
  Sex: Female
  Weight: 3.2 kg

DRUGS (5)
  1. TEGRETOL [Concomitant]
  2. VITAMIN K TAB [Concomitant]
  3. PAXIL [Suspect]
     Route: 064
  4. PAROXETINE [Suspect]
     Route: 064
  5. FOLIC ACID [Concomitant]

REACTIONS (5)
  - ATRIAL SEPTAL DEFECT [None]
  - CARDIAC FAILURE CONGESTIVE [None]
  - PATENT DUCTUS ARTERIOSUS [None]
  - LUNG DISORDER [None]
  - HYPOPLASTIC RIGHT HEART SYNDROME [None]
